FAERS Safety Report 7967178-4 (Version None)
Quarter: 2011Q4

REPORT INFORMATION
  Report Type: 
  Country: None (occurrence: None)
  Receive Date: 20111206
  Receipt Date: 20111122
  Transmission Date: 20120403
  Serious: No
  Sender: FDA-Public Use
  Company Number: TPA2011A08010

PATIENT
  Age: 85 Year
  Sex: Male

DRUGS (5)
  1. BISOPROLOL FUMARATE [Concomitant]
  2. FUROSEMIDE [Concomitant]
  3. IPERTEN (MANIDIPINE HYDROCHLORIDE) [Concomitant]
  4. COLCHICINE [Suspect]
     Dosage: ORAL
     Route: 048
  5. ADENURIC (FEBUXOSTAT) [Suspect]
     Dosage: (80 MG) ORAL
     Route: 048

REACTIONS (3)
  - PHOTOSENSITIVITY REACTION [None]
  - TOXIC SKIN ERUPTION [None]
  - DERMATITIS BULLOUS [None]
